FAERS Safety Report 25736418 (Version 1)
Quarter: 2025Q3

REPORT INFORMATION
  Report Type: Spontaneous
  Country: US (occurrence: US)
  Receive Date: 20250828
  Receipt Date: 20250828
  Transmission Date: 20251021
  Serious: No
  Sender: SANOFI AVENTIS
  Company Number: US-SA-2025SA257180

PATIENT
  Age: 15 Year
  Sex: Male
  Weight: 51.338 kg

DRUGS (1)
  1. DUPIXENT [Suspect]
     Active Substance: DUPILUMAB
     Dosage: 200 MG, QOW
     Route: 058
     Dates: end: 202412

REACTIONS (2)
  - Eczema [Recovered/Resolved]
  - Hypersensitivity [Unknown]
